FAERS Safety Report 11337397 (Version 1)
Quarter: 2015Q3

REPORT INFORMATION
  Report Type: Spontaneous
  Country: US (occurrence: US)
  Receive Date: 20150803
  Receipt Date: 20150803
  Transmission Date: 20151125
  Serious: No
  Sender: FDA-Public Use
  Company Number: US-ELI_LILLY_AND_COMPANY-US200906002222

PATIENT

DRUGS (15)
  1. ZYPREXA [Suspect]
     Active Substance: OLANZAPINE
     Dosage: 15 MG, UNK
  2. RAZADYNE [Concomitant]
     Active Substance: GALANTAMINE HYDROBROMIDE
     Dosage: 2 MG, UNK
  3. LEXAPRO [Concomitant]
     Active Substance: ESCITALOPRAM OXALATE
  4. NYSTATIN. [Concomitant]
     Active Substance: NYSTATIN
  5. CLONAZEPAM. [Concomitant]
     Active Substance: CLONAZEPAM
     Dosage: 2 MG, UNK
  6. NOVOLIN R [Concomitant]
     Active Substance: INSULIN HUMAN
  7. GLIMEPIRIDE. [Concomitant]
     Active Substance: GLIMEPIRIDE
  8. NOVOLIN 70/30 [Concomitant]
     Active Substance: INSULIN HUMAN
  9. ZOLOFT [Concomitant]
     Active Substance: SERTRALINE HYDROCHLORIDE
     Dosage: 100 MG, UNK
  10. PLAVIX [Concomitant]
     Active Substance: CLOPIDOGREL BISULFATE
  11. SEROQUEL [Concomitant]
     Active Substance: QUETIAPINE FUMARATE
  12. VERAPAMIL [Concomitant]
     Active Substance: VERAPAMIL HYDROCHLORIDE
     Dosage: 240 MG, UNK
  13. NAMENDA [Concomitant]
     Active Substance: MEMANTINE HYDROCHLORIDE
  14. ALTOPREV [Concomitant]
     Active Substance: LOVASTATIN
  15. EXELON [Concomitant]
     Active Substance: RIVASTIGMINE TARTRATE

REACTIONS (1)
  - Injury [Unknown]
